FAERS Safety Report 24453092 (Version 1)
Quarter: 2024Q4

REPORT INFORMATION
  Report Type: Spontaneous
  Country: US (occurrence: US)
  Receive Date: 20241017
  Receipt Date: 20241017
  Transmission Date: 20250115
  Serious: No
  Sender: SUNOVION
  Company Number: US-SMPA-202404-URV-000574AA

PATIENT
  Sex: Male
  Weight: 90.249 kg

DRUGS (10)
  1. GEMTESA [Suspect]
     Active Substance: VIBEGRON
     Indication: Hypertonic bladder
     Dosage: 1 PER, QD
     Route: 065
  2. GEMTESA [Suspect]
     Active Substance: VIBEGRON
     Dosage: UNK UNK, QD
     Route: 065
  3. LOSARTAN [Concomitant]
     Active Substance: LOSARTAN
     Indication: Product used for unknown indication
     Dosage: 100 MG
     Route: 065
  4. LOVASTATIN [Concomitant]
     Active Substance: LOVASTATIN
     Indication: Product used for unknown indication
     Dosage: 40 MG
     Route: 065
  5. PROPRANOLOL [Concomitant]
     Active Substance: PROPRANOLOL HYDROCHLORIDE
     Indication: Product used for unknown indication
     Dosage: 40 MG
     Route: 065
  6. ASPIRIN [Concomitant]
     Active Substance: ASPIRIN
     Indication: Product used for unknown indication
     Dosage: 81 MG
     Route: 065
  7. XARELTO [Concomitant]
     Active Substance: RIVAROXABAN
     Indication: Product used for unknown indication
     Dosage: 15 MG
     Route: 065
  8. TAMSULOSIN                         /01280302/ [Concomitant]
     Indication: Product used for unknown indication
     Dosage: 0.4 MG
     Route: 065
  9. FINASTERIDE [Concomitant]
     Active Substance: FINASTERIDE
     Indication: Product used for unknown indication
     Dosage: 5 MG
     Route: 065
  10. ONE A DAY                          /07499601/ [Concomitant]
     Indication: Product used for unknown indication
     Dosage: 1 UNK, QD
     Route: 065

REACTIONS (3)
  - Headache [Unknown]
  - Rhinorrhoea [Not Recovered/Not Resolved]
  - Dysuria [Not Recovered/Not Resolved]
